FAERS Safety Report 9848962 (Version 9)
Quarter: 2014Q2

REPORT INFORMATION
  Report Type: Spontaneous
  Country: US (occurrence: US)
  Receive Date: 20140128
  Receipt Date: 20140428
  Transmission Date: 20141212
  Serious: No
  Sender: FDA-Public Use
  Company Number: US-009507513-1401USA011759

PATIENT
  Age: 18 Year
  Sex: Female
  Weight: 57.78 kg

DRUGS (1)
  1. IMPLANON [Suspect]
     Indication: CONTRACEPTION
     Dosage: 1 ROD, LEFT ARM.
     Route: 059
     Dates: start: 20130628

REACTIONS (2)
  - Medical device complication [Unknown]
  - Drug dose omission [Unknown]
